FAERS Safety Report 8046459-2 (Version None)
Quarter: 2012Q1

REPORT INFORMATION
  Report Type: 
  Country: None (occurrence: None)
  Receive Date: 20120113
  Receipt Date: 20120104
  Transmission Date: 20120608
  Serious: Yes (Hospitalization)
  Sender: FDA-Public Use
  Company Number: GB-ABBOTT-11P-167-0858359-00

PATIENT
  Age: 65 Year
  Sex: Male

DRUGS (5)
  1. AMLODIPINE [Concomitant]
     Indication: HYPERTENSION
  2. HUMIRA [Suspect]
     Dates: start: 20110823
  3. RAMIPRIL [Concomitant]
     Indication: HYPERTENSION
  4. HUMIRA [Suspect]
     Dates: start: 20100311, end: 20110819
  5. HUMIRA [Suspect]
     Indication: PSORIASIS
     Route: 058
     Dates: start: 20080901

REACTIONS (2)
  - ATELECTASIS [None]
  - PULMONARY EMBOLISM [None]
